FAERS Safety Report 4965435-7 (Version None)
Quarter: 2006Q2

REPORT INFORMATION
  Report Type: 
  Country: None (occurrence: None)
  Receive Date: 20060406
  Receipt Date: 20050816
  Transmission Date: 20061013
  Serious: Yes (Hospitalization)
  Sender: FDA-Public Use
  Company Number: US-MERCK-0508USA03052

PATIENT
  Age: 72 Year
  Sex: Female
  Weight: 105 kg

DRUGS (30)
  1. ASPIRIN [Concomitant]
     Route: 048
  2. GLUCOPHAGE [Concomitant]
     Route: 065
  3. CAPTOPRIL [Concomitant]
     Route: 065
  4. CARDIZEM [Concomitant]
     Route: 048
  5. ZOCOR [Concomitant]
     Route: 048
  6. INSULIN [Concomitant]
     Route: 065
  7. DARVOCET [Concomitant]
     Route: 065
  8. ISORDIL [Concomitant]
     Route: 065
  9. VICODIN [Concomitant]
     Route: 065
  10. TRAZODONE HYDROCHLORIDE [Concomitant]
     Route: 065
  11. METFORMIN [Concomitant]
     Route: 065
  12. HYDROCODONE BITARTRATE [Concomitant]
     Route: 065
  13. PATANOL [Concomitant]
     Route: 065
  14. ALLEGRA [Concomitant]
     Route: 065
  15. ALLOPURINOL [Concomitant]
     Route: 065
  16. PROPOXYPHENE NAPSYLATE [Concomitant]
     Route: 065
  17. DIFLUCAN [Concomitant]
     Route: 065
  18. PSEUDOEPHEDRINE [Concomitant]
     Route: 065
  19. ACETASOL [Concomitant]
     Route: 065
  20. PRINCIPEN [Concomitant]
     Route: 065
  21. TRIMOX [Concomitant]
     Route: 065
  22. NEOMYCIN [Concomitant]
     Route: 065
  23. TOBRADEX [Concomitant]
     Route: 065
  24. SEPTRA DS [Concomitant]
     Route: 065
  25. NYSTOP [Concomitant]
     Route: 065
  26. NABUMETONE [Concomitant]
     Route: 065
  27. VIOXX [Suspect]
     Indication: OSTEOARTHRITIS
     Route: 048
     Dates: start: 19990101, end: 20040930
  28. VIOXX [Suspect]
     Route: 048
     Dates: start: 19990101, end: 20040930
  29. VIOXX [Suspect]
     Indication: ARTHRITIS
     Route: 048
     Dates: start: 19990101, end: 20040930
  30. VIOXX [Suspect]
     Route: 048
     Dates: start: 19990101, end: 20040930

REACTIONS (23)
  - ACUTE MYOCARDIAL INFARCTION [None]
  - ARTERIOVENOUS FISTULA OPERATION [None]
  - ATRIOVENTRICULAR BLOCK FIRST DEGREE [None]
  - BUNDLE BRANCH BLOCK LEFT [None]
  - CARDIAC FAILURE CONGESTIVE [None]
  - CEREBROVASCULAR ACCIDENT [None]
  - CORONARY ARTERY DISEASE [None]
  - CORONARY ARTERY STENOSIS [None]
  - DEPRESSION [None]
  - DIFFICULTY IN WALKING [None]
  - DIZZINESS [None]
  - DYSPNOEA EXERTIONAL [None]
  - DYSSTASIA [None]
  - FOOT FRACTURE [None]
  - GROIN INFECTION [None]
  - MITRAL VALVE INCOMPETENCE [None]
  - MYOCARDIAL INFARCTION [None]
  - SINUSITIS [None]
  - SLEEP DISORDER [None]
  - SOMNOLENCE [None]
  - TRANSIENT ISCHAEMIC ATTACK [None]
  - VASCULAR PSEUDOANEURYSM [None]
  - WOUND INFECTION PSEUDOMONAS [None]
